FAERS Safety Report 9537424 (Version 1)
Quarter: 2013Q3

REPORT INFORMATION
  Report Type: Spontaneous
  Country: US (occurrence: None)
  Receive Date: 20130918
  Receipt Date: 20130918
  Transmission Date: 20140515
  Serious: Yes (Life-Threatening, Disabling, Other)
  Sender: FDA-Public Use
  Company Number: None

PATIENT
  Age: 55 Year
  Sex: Male
  Weight: 80.74 kg

DRUGS (2)
  1. OXYCODONE HCL [Suspect]
     Indication: JOINT DISLOCATION
     Dosage: 1 AS NEEDED TAKEN BY MOUTH
     Route: 048
     Dates: start: 20130903, end: 20130917
  2. OXYCODONE HCL [Suspect]
     Indication: MUSCULOSKELETAL PAIN
     Dosage: 1 AS NEEDED TAKEN BY MOUTH
     Route: 048
     Dates: start: 20130903, end: 20130917

REACTIONS (6)
  - Product quality issue [None]
  - Product substitution issue [None]
  - Inadequate analgesia [None]
  - Pain [None]
  - Blood pressure increased [None]
  - Headache [None]
